FAERS Safety Report 6853150-4 (Version None)
Quarter: 2010Q3

REPORT INFORMATION
  Report Type: 
  Country: None (occurrence: None)
  Receive Date: 20100717
  Receipt Date: 20071128
  Transmission Date: 20110219
  Serious: No
  Sender: FDA-Public Use
  Company Number: US-PFIZER INC-2007102413

PATIENT
  Sex: Female
  Weight: 54.545 kg

DRUGS (2)
  1. CHANTIX [Suspect]
     Dates: start: 20071108
  2. DRUG, UNSPECIFIED [Concomitant]
     Indication: ARTHRITIS

REACTIONS (1)
  - NAUSEA [None]
